FAERS Safety Report 7948411-1 (Version None)
Quarter: 2011Q4

REPORT INFORMATION
  Report Type: 
  Country: None (occurrence: None)
  Receive Date: 20111130
  Receipt Date: 20111122
  Transmission Date: 20120403
  Serious: Yes (Death, Hospitalization, Other)
  Sender: FDA-Public Use
  Company Number: US-CELGENEUS-163-21880-11100113

PATIENT
  Sex: Male
  Weight: 83.99 kg

DRUGS (36)
  1. CALCIUM CARBONATE [Concomitant]
     Dosage: 600 MILLIGRAM
     Route: 048
  2. FINASTERIDE [Concomitant]
     Dosage: 5 MILLIGRAM
     Route: 048
  3. ESOMEPRAZOLE [Concomitant]
     Dosage: 40 MILLIGRAM
     Route: 048
  4. FISH OIL [Concomitant]
     Route: 065
  5. DEXAMETHASONE [Concomitant]
     Dosage: 4 TABLET
     Route: 048
  6. REGLAN [Concomitant]
     Dosage: 10 MILLIGRAM
     Route: 048
  7. SIMVASTATIN [Concomitant]
     Dosage: 10 MILLIGRAM
     Route: 048
  8. VELCADE [Concomitant]
     Route: 065
  9. BROAD SPECTRUM ANTIBIOTICS [Concomitant]
     Route: 065
  10. MAGNESIUM CHLORIDE [Concomitant]
     Route: 048
  11. ALLOPURINOL [Concomitant]
     Dosage: 100 MILLIGRAM
     Route: 048
  12. VITAMIN D [Concomitant]
     Route: 065
  13. NEURONTIN [Concomitant]
     Dosage: 300 MILLIGRAM
     Route: 065
  14. BLOOD TRANSFUSION [Concomitant]
     Route: 041
  15. PROSCAR [Concomitant]
     Dosage: 5 MILLIGRAM
     Route: 065
  16. PHENERGAN [Concomitant]
     Dosage: 12.5 MILLIGRAM
     Route: 065
  17. ASPIRIN [Concomitant]
     Dosage: 81 MILLIGRAM
     Route: 048
  18. FLOMAX [Concomitant]
     Dosage: .4 MILLIGRAM
     Route: 048
  19. MEGESTROL ACETATE [Concomitant]
     Dosage: 40 MILLIGRAM
     Route: 048
  20. LOVAZA [Concomitant]
     Dosage: 1000 MILLIGRAM
     Route: 048
  21. NEXIUM [Concomitant]
     Dosage: 40 MILLIGRAM
     Route: 065
  22. LEVOFLOXACIN [Concomitant]
     Dosage: 250 MILLIGRAM
     Route: 048
  23. KEFLEX [Concomitant]
     Dosage: 500 MILLIGRAM
     Route: 048
  24. TRIAMTERENE AND HYDROCHLOROTHIAZIDE [Concomitant]
     Dosage: 37.5-25 MG
     Route: 048
  25. ASCORBIC ACID [Concomitant]
     Route: 048
  26. PREVACID [Concomitant]
     Route: 065
  27. ZOCOR [Concomitant]
     Dosage: 10 MILLIGRAM
     Route: 065
  28. CALCITONIN SALMON [Concomitant]
     Dosage: 200/DOSE
     Route: 045
  29. CO Q-10 [Concomitant]
     Dosage: 300 MILLIGRAM
     Route: 048
  30. ALL OTHER THERAPEUTIC PRODUCTS [Concomitant]
     Dosage: 10 MILLILITER
     Route: 065
  31. PROMETHAZINE HCL [Concomitant]
     Indication: NAUSEA
     Dosage: 25 MILLIGRAM
     Route: 048
  32. VITAMIN D [Concomitant]
     Route: 065
  33. REVLIMID [Suspect]
     Indication: MULTIPLE MYELOMA
     Dosage: 25 MILLIGRAM
     Route: 048
     Dates: start: 20110909
  34. AMITRIPTYLINE HCL [Concomitant]
     Dosage: 25 MILLIGRAM
     Route: 048
  35. CHOLECALCIFEROL [Concomitant]
     Dosage: 5000 IU (INTERNATIONAL UNIT)
     Route: 048
  36. SUCRALFATE [Concomitant]
     Dosage: 1 GRAM
     Route: 048

REACTIONS (9)
  - ACUTE RESPIRATORY FAILURE [None]
  - DRY SKIN [None]
  - HYPOTENSION [None]
  - MULTIPLE MYELOMA [None]
  - DECREASED APPETITE [None]
  - PANCYTOPENIA [None]
  - RENAL FAILURE CHRONIC [None]
  - OESOPHAGITIS [None]
  - RASH [None]
